FAERS Safety Report 24289023 (Version 1)
Quarter: 2024Q3

REPORT INFORMATION
  Report Type: Spontaneous
  Country: US (occurrence: US)
  Receive Date: 20240906
  Receipt Date: 20240906
  Transmission Date: 20241016
  Serious: Yes (Other)
  Sender: HIKMA
  Company Number: US-MLMSERVICE-20240510-PI052533-00140-2

PATIENT
  Age: 20 Year
  Sex: Female

DRUGS (7)
  1. BLEOMYCIN [Suspect]
     Active Substance: BLEOMYCIN SULFATE
     Indication: Germ cell neoplasm
     Dosage: 15 U/M2 DAYS 1, 8, 15, 3 CYCLES (21-DAY CYCLE)
     Route: 065
  2. BLEOMYCIN [Suspect]
     Active Substance: BLEOMYCIN SULFATE
     Indication: Teratoma
  3. ETOPOSIDE [Suspect]
     Active Substance: ETOPOSIDE
     Indication: Teratoma
     Dosage: 50MG/M2 DAYS 1-21
     Route: 048
  4. ETOPOSIDE [Suspect]
     Active Substance: ETOPOSIDE
     Indication: Metastases to lung
     Dosage: 100 MG/M2 DAYS 1-5, 3 CYCLES (21-DAY CYCLE)
     Route: 042
  5. ETOPOSIDE [Suspect]
     Active Substance: ETOPOSIDE
     Indication: Germ cell cancer
  6. CISPLATIN [Suspect]
     Active Substance: CISPLATIN
     Indication: Germ cell neoplasm
     Dosage: 20 MILLIGRAM/SQ. METER DAYS 1-5, 3 CYCLES (21-DAY CYCLE)
     Route: 042
  7. CISPLATIN [Suspect]
     Active Substance: CISPLATIN
     Indication: Teratoma

REACTIONS (3)
  - KMT2A gene mutation [Recovering/Resolving]
  - Leukaemia [Recovering/Resolving]
  - B-cell type acute leukaemia [Recovering/Resolving]
